FAERS Safety Report 7905167-6 (Version None)
Quarter: 2011Q4

REPORT INFORMATION
  Report Type: 
  Country: None (occurrence: None)
  Receive Date: 20111109
  Receipt Date: 20111107
  Transmission Date: 20120403
  Serious: Yes (Other)
  Sender: FDA-Public Use
  Company Number: US-BAYER-2011-083826

PATIENT
  Age: 34 Year
  Sex: Female
  Weight: 64.853 kg

DRUGS (1)
  1. MIRENA [Suspect]
     Indication: CONTRACEPTION
     Dosage: 20 MCG/24HR, CONT
     Dates: start: 20110418, end: 20110720

REACTIONS (3)
  - MEDICAL DEVICE COMPLICATION [None]
  - DEVICE DISLOCATION [None]
  - ABDOMINAL PAIN [None]
